FAERS Safety Report 9587240 (Version 1)
Quarter: 2013Q4

REPORT INFORMATION
  Report Type: Spontaneous
  Country: CA (occurrence: CA)
  Receive Date: 20131003
  Receipt Date: 20131003
  Transmission Date: 20140711
  Serious: Yes (Death)
  Sender: FDA-Public Use
  Company Number: CA-B.I. PHARMACEUTICALS,INC./RIDGEFIELD-2013-CN-01611CN

PATIENT
  Age: 71 Year
  Sex: Male

DRUGS (5)
  1. PRADAXA [Suspect]
     Indication: ATRIAL FIBRILLATION
     Dosage: 220 MG
     Dates: start: 20110308
  2. ATENOLOL [Concomitant]
  3. ATORVASTATIN [Concomitant]
  4. RAMIPRIL [Concomitant]
  5. AVODART [Concomitant]

REACTIONS (2)
  - Cerebral haemorrhage [Fatal]
  - Fall [Unknown]
